FAERS Safety Report 19015277 (Version 2)
Quarter: 2021Q1

REPORT INFORMATION
  Report Type: Spontaneous
  Country: FR (occurrence: FR)
  Receive Date: 20210316
  Receipt Date: 20210326
  Transmission Date: 20210420
  Serious: Yes (Other)
  Sender: FDA-Public Use
  Company Number: FR-MALLINCKRODT-T202101218

PATIENT
  Sex: Female

DRUGS (1)
  1. UVADEX [Suspect]
     Active Substance: METHOXSALEN
     Indication: CUTANEOUS T-CELL LYMPHOMA
     Dosage: UNK, (EXTRACORPOREAL)
     Route: 050
     Dates: start: 2019

REACTIONS (1)
  - Tumour pseudoprogression [Unknown]

NARRATIVE: CASE EVENT DATE: 2019
